FAERS Safety Report 19300722 (Version 4)
Quarter: 2021Q3

REPORT INFORMATION
  Report Type: Report from Study
  Country: US (occurrence: US)
  Receive Date: 20210524
  Receipt Date: 20210716
  Transmission Date: 20211014
  Serious: Yes (Death, Hospitalization, Other)
  Sender: FDA-Public Use
  Company Number: US-GILEAD-2021-0532532

PATIENT
  Sex: Female
  Weight: 65.2 kg

DRUGS (1)
  1. KTE?X19 [Suspect]
     Active Substance: BREXUCABTAGENE AUTOLEUCEL
     Indication: HAEMATOLOGICAL MALIGNANCY
     Dosage: UNK
     Route: 042
     Dates: start: 20210504, end: 20210504

REACTIONS (3)
  - Pneumonia aspiration [Fatal]
  - Immune effector cell-associated neurotoxicity syndrome [Recovered/Resolved]
  - Haemophagocytic lymphohistiocytosis [Recovered/Resolved]

NARRATIVE: CASE EVENT DATE: 20210512
